FAERS Safety Report 13059468 (Version 6)
Quarter: 2018Q2

REPORT INFORMATION
  Report Type: Report from Study
  Country: US (occurrence: US)
  Receive Date: 20161223
  Receipt Date: 20180512
  Transmission Date: 20180711
  Serious: Yes (Hospitalization, Other)
  Sender: FDA-Public Use
  Company Number: US-SA-2016SA230951

PATIENT
  Age: 41 Year
  Sex: Female

DRUGS (1)
  1. LEMTRADA [Suspect]
     Active Substance: ALEMTUZUMAB
     Indication: MULTIPLE SCLEROSIS
     Route: 041
     Dates: start: 20160926, end: 20160928

REACTIONS (16)
  - Toothache [Unknown]
  - Sensory loss [Unknown]
  - Pain [Unknown]
  - Hypoaesthesia [Unknown]
  - Immune thrombocytopenic purpura [Recovered/Resolved]
  - Chapped lips [Not Recovered/Not Resolved]
  - Blood blister [Not Recovered/Not Resolved]
  - Platelet count decreased [Recovering/Resolving]
  - Nasopharyngitis [Unknown]
  - Loss of consciousness [Unknown]
  - Paraesthesia [Unknown]
  - Fall [Unknown]
  - Multiple sclerosis relapse [Unknown]
  - Contusion [Not Recovered/Not Resolved]
  - Lip haemorrhage [Recovered/Resolved]
  - Tooth disorder [Unknown]

NARRATIVE: CASE EVENT DATE: 201611
